FAERS Safety Report 23128605 (Version 1)
Quarter: 2023Q4

REPORT INFORMATION
  Report Type: Spontaneous
  Country: PT (occurrence: PT)
  Receive Date: 20231031
  Receipt Date: 20231031
  Transmission Date: 20240109
  Serious: Yes (Other)
  Sender: FDA-Public Use
  Company Number: None

PATIENT
  Age: 62 Year
  Sex: Female
  Weight: 70 kg

DRUGS (5)
  1. OCALIVA [Suspect]
     Active Substance: OBETICHOLIC ACID
     Indication: Biliary cirrhosis
     Dosage: 5 MG, QD (5 MG 24/24 HORAS, DISPERSIBLE TABLET)
     Route: 048
     Dates: start: 20230426
  2. ACIDO URSODESOXICOLICO [Concomitant]
     Indication: Product used for unknown indication
     Dosage: UNK (DOSE E POSOLOGIA DESCONHECIDAS)
  3. SERTRALINE HYDROCHLORIDE [Concomitant]
     Active Substance: SERTRALINE HYDROCHLORIDE
     Indication: Product used for unknown indication
     Dosage: UNK (DOSE E POSOLOGIA DESCONHECIDAS)
  4. BEZAFIBRATO [Concomitant]
     Indication: Product used for unknown indication
     Dosage: UNK (DOSE E POSOLOGIA DESCONHECIDAS)
  5. METFORMIN HYDROCHLORIDE [Concomitant]
     Active Substance: METFORMIN HYDROCHLORIDE
     Indication: Product used for unknown indication
     Dosage: UNK (DOSE E POSOLOGIA DESCONHECIDAS)

REACTIONS (3)
  - Myalgia [Not Recovered/Not Resolved]
  - Papule [Not Recovered/Not Resolved]
  - Pruritus [Not Recovered/Not Resolved]

NARRATIVE: CASE EVENT DATE: 20230501
